FAERS Safety Report 18668263 (Version 1)
Quarter: 2020Q4

REPORT INFORMATION
  Report Type: Spontaneous
  Country: US (occurrence: US)
  Receive Date: 20201224
  Receipt Date: 20201224
  Transmission Date: 20210114
  Serious: Yes (Disabling)
  Sender: FDA-Public Use
  Company Number: None

PATIENT
  Age: 33 Year
  Sex: Female
  Weight: 51.3 kg

DRUGS (1)
  1. HYPERRHO S/D MINI-DOSE [Suspect]
     Active Substance: HUMAN RHO(D) IMMUNE GLOBULIN
     Indication: RHESUS ANTIGEN NEGATIVE
     Route: 058
     Dates: start: 20200815, end: 20200815

REACTIONS (5)
  - Pyrexia [None]
  - Contusion [None]
  - Haemorrhagic disorder [None]
  - Malaise [None]
  - Haemorrhage [None]

NARRATIVE: CASE EVENT DATE: 20200815
